FAERS Safety Report 14680223 (Version 6)
Quarter: 2018Q2

REPORT INFORMATION
  Report Type: Spontaneous
  Country: DK (occurrence: DK)
  Receive Date: 20180326
  Receipt Date: 20180517
  Transmission Date: 20180711
  Serious: Yes (Hospitalization, Other)
  Sender: FDA-Public Use
  Company Number: DK-009507513-1803DNK009528

PATIENT
  Age: 76 Year
  Sex: Female

DRUGS (12)
  1. PROLIA [Suspect]
     Active Substance: DENOSUMAB
     Indication: OSTEOPOROSIS
     Dosage: 1 DF, Q6M (STENGTH: 60 MG/ML)
     Route: 058
     Dates: start: 2013, end: 20171017
  2. ASPIRIN. [Concomitant]
     Active Substance: ASPIRIN
     Indication: THROMBOSIS PROPHYLAXIS
     Dosage: 75 MG, QD (STRENGTH: 75 MG)
     Route: 048
     Dates: start: 20160125
  3. ALENDRONATE SODIUM. [Suspect]
     Active Substance: ALENDRONATE SODIUM
     Indication: OSTEOPOROSIS
     Dosage: UNK
     Route: 048
  4. PREDNISOLONE. [Concomitant]
     Active Substance: PREDNISOLONE
     Indication: GLUCOCORTICOIDS ABNORMAL
     Dosage: 12.5 MG, QD
     Route: 048
     Dates: start: 20161104, end: 20170601
  5. ZOPICLONE [Concomitant]
     Active Substance: ZOPICLONE
     Indication: INSOMNIA
     Dosage: 3.75 MG, QD
     Route: 048
     Dates: start: 20160414
  6. ACETAMINOPHEN. [Concomitant]
     Active Substance: ACETAMINOPHEN
     Indication: PAIN
     Dosage: 4000 MG, QD (STRENGTH: 500 MG)
     Route: 048
     Dates: start: 20171017, end: 20171019
  7. PREDNISOLONE. [Concomitant]
     Active Substance: PREDNISOLONE
     Indication: ADRENOCORTICAL STEROID THERAPY
     Dosage: 5 MG, UNK
     Route: 048
     Dates: start: 20171026
  8. SIMVASTATIN. [Concomitant]
     Active Substance: SIMVASTATIN
     Dosage: 40 MG, QD
     Route: 048
     Dates: start: 20160125
  9. TRAMADOL HYDROCHLORIDE. [Concomitant]
     Active Substance: TRAMADOL HYDROCHLORIDE
     Indication: PAIN
     Dosage: 50 MG, 1-3 TABLETS AS NECESSARY
     Route: 048
     Dates: start: 20160822
  10. ALENDRONATE SODIUM. [Suspect]
     Active Substance: ALENDRONATE SODIUM
     Dosage: 5 MG, UNK
     Dates: start: 20171026
  11. HYDROXYUREA. [Concomitant]
     Active Substance: HYDROXYUREA
     Indication: LEUKAEMIA
     Dosage: 500 MG, QOD; 1 CAPSULE ON MONDAYS, WEDNESDAYS AND FRIDAYS
     Route: 048
     Dates: start: 20170421, end: 20180130
  12. WARFARIN [Concomitant]
     Active Substance: WARFARIN
     Indication: THROMBOSIS PROPHYLAXIS
     Dosage: 2.5 MG, QD
     Route: 048
     Dates: start: 20161021, end: 20180222

REACTIONS (4)
  - Osteonecrosis of jaw [Recovered/Resolved]
  - Jaw operation [Recovered/Resolved]
  - Abscess jaw [Unknown]
  - Sequestrectomy [Recovered/Resolved]

NARRATIVE: CASE EVENT DATE: 20171019
